FAERS Safety Report 6051714-1 (Version None)
Quarter: 2009Q1

REPORT INFORMATION
  Report Type: 
  Country: None (occurrence: None)
  Receive Date: 20090126
  Receipt Date: 20090116
  Transmission Date: 20090719
  Serious: Yes (Other)
  Sender: FDA-Public Use
  Company Number: JP-ASTRAZENECA-2009AP00681

PATIENT
  Age: 88 Year
  Sex: Female

DRUGS (1)
  1. MEROPEN [Suspect]
     Indication: CELLULITIS
     Route: 042
     Dates: start: 20081126

REACTIONS (1)
  - DRUG ERUPTION [None]
